FAERS Safety Report 10014880 (Version 1)
Quarter: 2014Q1

REPORT INFORMATION
  Report Type: Spontaneous
  Country: GB (occurrence: GB)
  Receive Date: 20140317
  Receipt Date: 20140317
  Transmission Date: 20141002
  Serious: Yes (Hospitalization, Other)
  Sender: FDA-Public Use
  Company Number: GB-PFIZER INC-2014069894

PATIENT
  Sex: 0

DRUGS (6)
  1. EXEMESTANE [Suspect]
     Indication: BREAST CANCER
     Dosage: UNK
     Dates: start: 201301
  2. EVEROLIMUS [Suspect]
     Indication: BREAST CANCER
     Dosage: 10 MG
     Dates: start: 201301
  3. EVEROLIMUS [Suspect]
     Dosage: 5 MG
  4. E45 [Concomitant]
     Indication: MOUTH ULCERATION
  5. GABAPENTIN [Concomitant]
     Indication: PAIN
  6. LETROZOLE [Concomitant]

REACTIONS (27)
  - Mouth ulceration [Recovering/Resolving]
  - Dry skin [Unknown]
  - Rash [Not Recovered/Not Resolved]
  - Fatigue [Unknown]
  - Acne [Unknown]
  - Nausea [Not Recovered/Not Resolved]
  - Glossodynia [Unknown]
  - Groin pain [Unknown]
  - Pain in extremity [Unknown]
  - Abasia [Unknown]
  - Constipation [Unknown]
  - Chills [Unknown]
  - Tremor [Unknown]
  - Peripheral coldness [Unknown]
  - Decreased appetite [Recovering/Resolving]
  - Weight decreased [Unknown]
  - Pyrexia [Unknown]
  - Urinary tract infection [Unknown]
  - Lower respiratory tract infection [Unknown]
  - Anaemia [Unknown]
  - Pruritus [Recovered/Resolved]
  - Inflammation [Unknown]
  - Disease progression [Unknown]
  - Breast cancer [Unknown]
  - Metastases to spine [Unknown]
  - Metastases to liver [Unknown]
  - Metastases to bone [Unknown]
